FAERS Safety Report 16094026 (Version 1)
Quarter: 2019Q1

REPORT INFORMATION
  Report Type: Report from Study
  Country: AU (occurrence: AU)
  Receive Date: 20190320
  Receipt Date: 20190320
  Transmission Date: 20190418
  Serious: Yes (Hospitalization)
  Sender: FDA-Public Use
  Company Number: AU-ROCHE-2264259

PATIENT
  Age: 65 Year
  Sex: Male
  Weight: 72.1 kg

DRUGS (3)
  1. VENETOCLAX. [Suspect]
     Active Substance: VENETOCLAX
     Indication: NON-HODGKIN^S LYMPHOMA
     Dosage: DATE OF MOST RECENT DOSE OF VENETOCLAX (600 MG) PRIOR TO AE ONSET 05/FEB/2019 AT 11.45?DATE OF MOST
     Route: 048
     Dates: start: 20190122
  2. RO 6870810 (BET INHIBITOR) [Suspect]
     Active Substance: RO-6870810
     Indication: NON-HODGKIN^S LYMPHOMA
     Dosage: ON DAYS 1-14 OF 21-DAY CYCLES?DATE OF MOST RECENT DOSE OF RO6870810 (0.65 MG/KG) PRIOR TO AE AND SAE
     Route: 058
     Dates: start: 20190122
  3. RITUXIMAB. [Suspect]
     Active Substance: RITUXIMAB
     Indication: NON-HODGKIN^S LYMPHOMA
     Dosage: DATE OF MOST RECENT DOSE OF RITUXIMAB PRIOR TO AE ONSET: 05/FEB/2019 A 12:59
     Route: 042
     Dates: start: 20190205

REACTIONS (1)
  - Sinus tachycardia [Recovered/Resolved]

NARRATIVE: CASE EVENT DATE: 20190212
